FAERS Safety Report 11443553 (Version 1)
Quarter: 2015Q3

REPORT INFORMATION
  Report Type: Other
  Country: GB (occurrence: GB)
  Receive Date: 20150901
  Receipt Date: 20150901
  Transmission Date: 20151125
  Serious: Yes (Other)
  Sender: FDA-Public Use
  Company Number: GB-ENDO PHARMACEUTICALS INC-2015-002611

PATIENT

DRUGS (1)
  1. XIAPEX [Suspect]
     Active Substance: COLLAGENASE CLOSTRIDIUM HISTOLYTICUM
     Indication: DUPUYTREN^S CONTRACTURE
     Route: 026

REACTIONS (4)
  - Skin exfoliation [Recovered/Resolved]
  - Contusion [Recovered/Resolved]
  - Laceration [Recovered/Resolved]
  - Blood blister [Recovered/Resolved]
